FAERS Safety Report 4336913-9 (Version None)
Quarter: 2004Q2

REPORT INFORMATION
  Report Type: 
  Country: None (occurrence: None)
  Receive Date: 20040407
  Receipt Date: 20040325
  Transmission Date: 20050107
  Serious: Yes (Other)
  Sender: FDA-Public Use
  Company Number: 2004021457

PATIENT
  Age: 45 Year
  Sex: Female
  Weight: 90.7194 kg

DRUGS (4)
  1. NEURONTIN [Suspect]
     Indication: PAIN MANAGEMENT
     Dosage: 800 MG (DAILY), ORAL
     Route: 048
     Dates: start: 19990201
  2. PSEUDOEPHEDRINE HCL [Suspect]
     Indication: ILL-DEFINED DISORDER
     Dosage: ORAL
     Route: 048
     Dates: start: 20040317
  3. OXYCODONE HCL [Suspect]
     Indication: ILL-DEFINED DISORDER
     Dosage: ORAL
     Route: 048
  4. VENLAFAXINE HCL [Suspect]
     Indication: ILL-DEFINED DISORDER
     Dosage: ORAL
     Route: 048

REACTIONS (14)
  - ANXIETY [None]
  - BLOOD TRIGLYCERIDES INCREASED [None]
  - DEPRESSED LEVEL OF CONSCIOUSNESS [None]
  - DEPRESSION [None]
  - HOT FLUSH [None]
  - HYPERTENSION [None]
  - INSOMNIA [None]
  - MENOPAUSE [None]
  - MUSCLE SPASMS [None]
  - NIGHT CRAMPS [None]
  - PAIN [None]
  - PANIC ATTACK [None]
  - SOMNOLENCE [None]
  - SPINAL LAMINECTOMY [None]
